FAERS Safety Report 15325580 (Version 1)
Quarter: 2018Q3

REPORT INFORMATION
  Report Type: Spontaneous
  Country: FR (occurrence: FR)
  Receive Date: 20180828
  Receipt Date: 20180828
  Transmission Date: 20181010
  Serious: Yes (Other)
  Sender: FDA-Public Use
  Company Number: FR-TEVA-2018-FR-947510

PATIENT
  Age: 68 Year
  Sex: Male

DRUGS (2)
  1. OXALIPLATINE TEVA [Suspect]
     Active Substance: OXALIPLATIN
     Indication: COLON CANCER
     Route: 042
     Dates: start: 20180524, end: 20180524
  2. OXALIPLATINE TEVA [Suspect]
     Active Substance: OXALIPLATIN
     Route: 042
     Dates: start: 20180503, end: 20180503

REACTIONS (2)
  - Malaise [Recovered/Resolved]
  - Vomiting [Recovered/Resolved]

NARRATIVE: CASE EVENT DATE: 20180503
